FAERS Safety Report 11098474 (Version 1)
Quarter: 2015Q2

REPORT INFORMATION
  Report Type: Spontaneous
  Country: US (occurrence: US)
  Receive Date: 20150507
  Receipt Date: 20150507
  Transmission Date: 20150821
  Serious: Yes (Other)
  Sender: FDA-Public Use
  Company Number: US-CELGENEUS-USA-2015050038

PATIENT
  Sex: Male

DRUGS (1)
  1. POMALYST [Suspect]
     Active Substance: POMALIDOMIDE
     Indication: PLASMA CELL MYELOMA
     Dosage: ALTERNATING DOSE 1MG-2MG
     Route: 048
     Dates: start: 201403

REACTIONS (3)
  - Influenza [Unknown]
  - Root canal infection [Unknown]
  - Sinusitis [Unknown]
